FAERS Safety Report 5955787-3 (Version None)
Quarter: 2008Q4

REPORT INFORMATION
  Report Type: 
  Country: None (occurrence: None)
  Receive Date: 20081117
  Receipt Date: 20081112
  Transmission Date: 20090506
  Serious: Yes (Hospitalization)
  Sender: FDA-Public Use
  Company Number: GB-B.I. PHARMACEUTICALS,INC./RIDGEFIELD-2008-UK-01745UK

PATIENT
  Sex: Male

DRUGS (2)
  1. ATROVENT [Suspect]
  2. FLUTICASONE PROPIONATE [Suspect]

REACTIONS (1)
  - FLUID RETENTION [None]
